FAERS Safety Report 12898143 (Version 1)
Quarter: 2016Q4

REPORT INFORMATION
  Report Type: Spontaneous
  Country: GB (occurrence: GB)
  Receive Date: 20161031
  Receipt Date: 20161031
  Transmission Date: 20170207
  Serious: Yes (Hospitalization)
  Sender: FDA-Public Use
  Company Number: GB-JNJFOC-20161026124

PATIENT
  Age: 29 Year
  Sex: Female

DRUGS (12)
  1. METFORMIN [Concomitant]
     Active Substance: METFORMIN HYDROCHLORIDE
     Route: 065
  2. ATORVASTATIN [Concomitant]
     Active Substance: ATORVASTATIN
     Dosage: MORNING
     Route: 048
  3. CANAGLIFLOZIN [Concomitant]
     Active Substance: CANAGLIFLOZIN
     Dosage: MORNING
     Route: 048
  4. SITAGLIPTIN [Concomitant]
     Active Substance: SITAGLIPTIN
     Route: 065
  5. PARACETAMOL [Concomitant]
     Active Substance: ACETAMINOPHEN
     Dosage: EVERY FOUR HOURS
     Route: 065
  6. LORAZEPAM. [Concomitant]
     Active Substance: LORAZEPAM
     Route: 065
  7. HALOPERIDOL. [Suspect]
     Active Substance: HALOPERIDOL
     Indication: AGGRESSION
     Dosage: CUMULATIVE DOSE TO FIRST REACTION: 70
     Route: 048
     Dates: start: 20160922, end: 20161003
  8. DIAZEPAM. [Concomitant]
     Active Substance: DIAZEPAM
     Dosage: 3 MG IN MORNING AND 4 MG AT NIGHT
     Route: 065
  9. PROCYCLIDINE [Concomitant]
     Active Substance: PROCYCLIDINE
     Indication: PROPHYLAXIS
     Dosage: DOSE: 05
     Route: 030
     Dates: start: 20160922, end: 20160922
  10. PROPRANOLOL [Concomitant]
     Active Substance: PROPRANOLOL\PROPRANOLOL HYDROCHLORIDE
     Route: 065
  11. PROCYCLIDINE [Concomitant]
     Active Substance: PROCYCLIDINE
     Indication: PROPHYLAXIS
     Route: 030
     Dates: end: 20161003
  12. SODIUM VALPROATE [Concomitant]
     Active Substance: VALPROATE SODIUM
     Indication: EPILEPSY
     Route: 065

REACTIONS (23)
  - Neuroleptic malignant syndrome [Recovering/Resolving]
  - Personality change [Unknown]
  - Social avoidant behaviour [Unknown]
  - Mental disorder [Unknown]
  - Abnormal behaviour [Unknown]
  - Staring [Unknown]
  - Blood urea increased [Unknown]
  - Hyperhidrosis [Unknown]
  - Incontinence [Unknown]
  - Balance disorder [Unknown]
  - Pupillary reflex impaired [Unknown]
  - Pallor [Unknown]
  - Tremor [Unknown]
  - Salivary hypersecretion [Unknown]
  - Infection [Unknown]
  - Tachycardia [Unknown]
  - Blood pressure increased [Unknown]
  - Neutrophil count increased [Unknown]
  - Blood creatine phosphokinase increased [Unknown]
  - White blood cell count increased [Unknown]
  - Seizure [Unknown]
  - Decreased appetite [Unknown]
  - Muscle rigidity [Unknown]

NARRATIVE: CASE EVENT DATE: 20160929
